FAERS Safety Report 6218064-1 (Version None)
Quarter: 2009Q2

REPORT INFORMATION
  Report Type: 
  Country: None (occurrence: None)
  Receive Date: 20090608
  Receipt Date: 20090603
  Transmission Date: 20091009
  Serious: Yes (Other)
  Sender: FDA-Public Use
  Company Number: US-ABBOTT-09P-163-0577574-00

PATIENT
  Age: 25 Year
  Sex: Female

DRUGS (3)
  1. RITONAVIR [Suspect]
     Indication: DRUG USE FOR UNKNOWN INDICATION
     Route: 048
     Dates: start: 20090406
  2. TRUVADA [Suspect]
     Indication: DRUG USE FOR UNKNOWN INDICATION
     Route: 048
     Dates: start: 20090406
  3. REYATAZ [Suspect]
     Indication: DRUG USE FOR UNKNOWN INDICATION
     Route: 048
     Dates: start: 20090406

REACTIONS (3)
  - ABORTION SPONTANEOUS [None]
  - INFLUENZA [None]
  - PNEUMONIA [None]
